FAERS Safety Report 10071423 (Version 1)
Quarter: 2014Q2

REPORT INFORMATION
  Report Type: Spontaneous
  Country: DE (occurrence: DE)
  Receive Date: 20140410
  Receipt Date: 20140410
  Transmission Date: 20141212
  Serious: Yes (Death, Other)
  Sender: FDA-Public Use
  Company Number: DE-B.I. PHARMACEUTICALS,INC./RIDGEFIELD-2014-BI-15671DE

PATIENT
  Age: 80 Year
  Sex: 0

DRUGS (5)
  1. PRADAXA [Suspect]
     Indication: THROMBOSIS PROPHYLAXIS
     Dosage: 220 MG
     Route: 048
     Dates: start: 20140326, end: 20140329
  2. METOHEXAL [Concomitant]
     Dosage: DOSE PER APPLICATION : 47.5,
     Route: 048
     Dates: end: 20140329
  3. NAFTILONG [Concomitant]
     Dosage: DOSE PER APPLICATION : 200
     Route: 048
     Dates: end: 20140329
  4. DELIX 5 [Concomitant]
     Dosage: DOSE PER APPLICATION : 5
     Route: 048
     Dates: end: 20140329
  5. IBUPROFEN [Concomitant]
     Indication: PAIN
     Dosage: DOSE PER APPLICATION: 600
     Route: 048
     Dates: start: 20140326, end: 20140329

REACTIONS (3)
  - Post procedural haemorrhage [Fatal]
  - Acute abdomen [Unknown]
  - Haemorrhage [Unknown]
